FAERS Safety Report 24398664 (Version 3)
Quarter: 2025Q3

REPORT INFORMATION
  Report Type: Report from Study
  Country: US (occurrence: US)
  Receive Date: 20241004
  Receipt Date: 20250909
  Transmission Date: 20251020
  Serious: No
  Sender: MERCK SHARP & DOHME LLC
  Company Number: None

PATIENT
  Sex: Male
  Weight: 63.5 kg

DRUGS (42)
  1. WINREVAIR [Suspect]
     Active Substance: SOTATERCEPT-CSRK
     Dosage: 45 MG/3 WEEKS
  2. WINREVAIR [Suspect]
     Active Substance: SOTATERCEPT-CSRK
     Dates: start: 2024
  3. WINREVAIR [Suspect]
     Active Substance: SOTATERCEPT-CSRK
  4. WINREVAIR [Suspect]
     Active Substance: SOTATERCEPT-CSRK
  5. REMODULIN [Suspect]
     Active Substance: TREPROSTINIL
     Indication: Pulmonary arterial hypertension
     Route: 058
     Dates: start: 20230127
  6. FISH OIL [Concomitant]
     Active Substance: FISH OIL
  7. TECFIDERA [Concomitant]
     Active Substance: DIMETHYL FUMARATE
  8. FIORICET [Concomitant]
     Active Substance: ACETAMINOPHEN\BUTALBITAL\CAFFEINE
  9. POTASSIUM CHLORIDE [Concomitant]
     Active Substance: POTASSIUM CHLORIDE
  10. TRAZODONE HCL [Concomitant]
     Active Substance: TRAZODONE HYDROCHLORIDE
  11. LASIX [Concomitant]
     Active Substance: FUROSEMIDE
  12. SYNTHROID [Concomitant]
     Active Substance: LEVOTHYROXINE SODIUM
  13. MAGNESIUM [Concomitant]
     Active Substance: MAGNESIUM
  14. OCREVUS [Concomitant]
     Active Substance: OCRELIZUMAB
  15. VITAMINS NOS [Concomitant]
     Active Substance: VITAMINS
  16. ADCIRCA [Concomitant]
     Active Substance: TADALAFIL
  17. D 400 [Concomitant]
  18. ASPIRIN [Concomitant]
     Active Substance: ASPIRIN
  19. GABAPENTIN [Concomitant]
     Active Substance: GABAPENTIN
  20. OMEPRAZOLE [Concomitant]
     Active Substance: OMEPRAZOLE
  21. DULOXETINE HYDROCHLORIDE [Concomitant]
     Active Substance: DULOXETINE HYDROCHLORIDE
  22. LIDOCAINE [Concomitant]
     Active Substance: LIDOCAINE
  23. VALACYCLOVIR HYDROCHLORIDE [Concomitant]
     Active Substance: VALACYCLOVIR HYDROCHLORIDE
  24. LANSOPRAZOLE [Concomitant]
     Active Substance: LANSOPRAZOLE
  25. ACETAMINOPHEN\HYDROCODONE [Concomitant]
     Active Substance: ACETAMINOPHEN\HYDROCODONE
  26. TRIAMCINOLONE ACETONIDE [Concomitant]
     Active Substance: TRIAMCINOLONE ACETONIDE
  27. OXYCODONE HYDROCHLORIDE [Concomitant]
     Active Substance: OXYCODONE HYDROCHLORIDE
  28. OPSUMIT [Concomitant]
     Active Substance: MACITENTAN
  29. AZELASTINE HYDROCHLORIDE [Concomitant]
     Active Substance: AZELASTINE HYDROCHLORIDE
  30. CIALIS [Concomitant]
     Active Substance: TADALAFIL
  31. OMEGA Q30 [Concomitant]
  32. BUPROPION HYDROCHLORIDE XL [Concomitant]
     Active Substance: BUPROPION HYDROCHLORIDE
  33. REBIF [Concomitant]
     Active Substance: INTERFERON BETA-1A
  34. NURTEC ODT [Concomitant]
     Active Substance: RIMEGEPANT SULFATE
  35. FLONASE ALLERGY RELIEF [Concomitant]
     Active Substance: FLUTICASONE PROPIONATE
  36. UPTRAVI [Concomitant]
     Active Substance: SELEXIPAG
  37. MIDODRINE HYDROCHLORIDE [Concomitant]
     Active Substance: MIDODRINE HYDROCHLORIDE
  38. SODIUM CHLORIDE;WATER [Concomitant]
  39. WARFARIN SODIUM [Concomitant]
     Active Substance: WARFARIN SODIUM
  40. DIPHENHYDRAMINE HYDROCHLORIDE [Concomitant]
     Active Substance: DIPHENHYDRAMINE HYDROCHLORIDE
  41. AMBRISENTAN [Concomitant]
     Active Substance: AMBRISENTAN
  42. ZANTAC 360 MAXIMUM STRENGTH [Concomitant]

REACTIONS (7)
  - Adverse event [Unknown]
  - Exposure via skin contact [Unknown]
  - Headache [Unknown]
  - Device leakage [Unknown]
  - Inappropriate schedule of product administration [Unknown]
  - Accidental exposure to product [Unknown]
  - Poor quality device used [Unknown]

NARRATIVE: CASE EVENT DATE: 20240101
